FAERS Safety Report 16237069 (Version 1)
Quarter: 2019Q2

REPORT INFORMATION
  Report Type: Spontaneous
  Country: US (occurrence: US)
  Receive Date: 20190320
  Receipt Date: 20190320
  Transmission Date: 20190711
  Serious: Yes (Hospitalization)
  Sender: FDA-Public Use
  Company Number: None

PATIENT
  Age: 87 Year
  Sex: Female
  Weight: 49.8 kg

DRUGS (1)
  1. LENALIDOMIDE  (CC-5013) [Suspect]
     Active Substance: LENALIDOMIDE
     Dates: end: 20190312

REACTIONS (3)
  - Nausea [None]
  - Abdominal pain [None]
  - Muscle spasms [None]

NARRATIVE: CASE EVENT DATE: 20190312
